FAERS Safety Report 7867621-5 (Version None)
Quarter: 2011Q4

REPORT INFORMATION
  Report Type: 
  Country: None (occurrence: None)
  Receive Date: 20111028
  Receipt Date: 20111024
  Transmission Date: 20120403
  Serious: Yes (Hospitalization, Other)
  Sender: FDA-Public Use
  Company Number: PHHY2011BR54693

PATIENT
  Sex: Female

DRUGS (3)
  1. SIMVASTATIN [Concomitant]
  2. METFFORMIN HYDROCHLORIDE [Concomitant]
     Dosage: 500 MG, UNK
  3. DIOVAN HCT [Suspect]
     Indication: HYPERTENSION
     Dosage: 160 MG VALS AND 25 MG HCT, 1 TABLET A DAY
     Route: 048

REACTIONS (2)
  - ARRHYTHMIA [None]
  - PALPITATIONS [None]
